FAERS Safety Report 11553060 (Version 2)
Quarter: 2015Q3

REPORT INFORMATION
  Report Type: Spontaneous
  Country: US (occurrence: US)
  Receive Date: 20150925
  Receipt Date: 20150929
  Transmission Date: 20151125
  Serious: Yes (Hospitalization)
  Sender: FDA-Public Use
  Company Number: US-ENDO PHARMACEUTICALS INC.-2015-002992

PATIENT
  Age: 60 Year
  Sex: Male
  Weight: 83.99 kg

DRUGS (4)
  1. VIAGRA [Concomitant]
     Active Substance: SILDENAFIL CITRATE
     Indication: ERECTILE DYSFUNCTION
     Route: 048
     Dates: start: 2010
  2. CIALIS [Concomitant]
     Active Substance: TADALAFIL
     Indication: ERECTILE DYSFUNCTION
     Route: 048
     Dates: start: 2010
  3. EDEX [Suspect]
     Active Substance: ALPROSTADIL
     Route: 017
     Dates: start: 201411
  4. EDEX [Suspect]
     Active Substance: ALPROSTADIL
     Indication: ERECTILE DYSFUNCTION
     Route: 017
     Dates: start: 2013, end: 201411

REACTIONS (6)
  - Implantable defibrillator insertion [Recovered/Resolved]
  - Brain hypoxia [Unknown]
  - Myocardial infarction [Recovered/Resolved]
  - Drug ineffective [Not Recovered/Not Resolved]
  - Penile size reduced [Not Recovered/Not Resolved]
  - Disturbance in sexual arousal [Not Recovered/Not Resolved]

NARRATIVE: CASE EVENT DATE: 2013
